FAERS Safety Report 11847240 (Version 1)
Quarter: 2015Q4

REPORT INFORMATION
  Report Type: Spontaneous
  Country: US (occurrence: US)
  Receive Date: 20151217
  Receipt Date: 20151217
  Transmission Date: 20160305
  Serious: No
  Sender: FDA-Public Use
  Company Number: US-ROCHE-1517806

PATIENT
  Sex: Female

DRUGS (3)
  1. ATENOLOL. [Concomitant]
     Active Substance: ATENOLOL
  2. PLAVIX [Concomitant]
     Active Substance: CLOPIDOGREL BISULFATE
  3. TAMIFLU [Suspect]
     Active Substance: OSELTAMIVIR PHOSPHATE
     Indication: INFLUENZA
     Route: 065
     Dates: start: 20150102, end: 20150104

REACTIONS (7)
  - Drug dose omission [Unknown]
  - Eye swelling [Unknown]
  - Nausea [Recovered/Resolved]
  - Rash macular [Recovered/Resolved]
  - Contusion [Recovering/Resolving]
  - Rash [Unknown]
  - Burning sensation [Unknown]
